FAERS Safety Report 14928264 (Version 1)
Quarter: 2018Q2

REPORT INFORMATION
  Report Type: Spontaneous
  Country: US (occurrence: US)
  Receive Date: 20180523
  Receipt Date: 20180523
  Transmission Date: 20180711
  Serious: No
  Sender: FDA-Public Use
  Company Number: US-MYLANLABS-2018M1029764

PATIENT
  Sex: Female

DRUGS (1)
  1. CROMOLYN SODIUM, USP ORAL CONCENTRATE [Suspect]
     Active Substance: CROMOLYN SODIUM
     Indication: PRODUCT USED FOR UNKNOWN INDICATION
     Dosage: UNK
     Route: 048

REACTIONS (4)
  - Product taste abnormal [Unknown]
  - Product odour abnormal [Unknown]
  - Malaise [Unknown]
  - Respiratory disorder [Unknown]
